FAERS Safety Report 12883825 (Version 1)
Quarter: 2016Q4

REPORT INFORMATION
  Report Type: Report from Study
  Country: IT (occurrence: IT)
  Receive Date: 20161026
  Receipt Date: 20161026
  Transmission Date: 20170207
  Serious: Yes (Other)
  Sender: FDA-Public Use
  Company Number: IT-ROCHE-1843216

PATIENT

DRUGS (3)
  1. RIBAVIRIN. [Suspect]
     Active Substance: RIBAVIRIN
     Indication: HEPATITIS C
     Route: 048
  2. PEG-INTERFERON LAMBDA [Suspect]
     Active Substance: PEGINTERFERON LAMBDA-1A
     Indication: HEPATITIS C
     Route: 058
  3. DACLATASVIR. [Suspect]
     Active Substance: DACLATASVIR
     Indication: HEPATITIS C
     Route: 048

REACTIONS (8)
  - Hepatitis acute [Unknown]
  - Jaundice [Unknown]
  - Arthritis bacterial [Unknown]
  - Aspartate aminotransferase increased [Unknown]
  - Blood bilirubin increased [Unknown]
  - Haemorrhoids [Unknown]
  - Post procedural haemorrhage [Unknown]
  - Alanine aminotransferase increased [Unknown]
